FAERS Safety Report 5131723-7 (Version None)
Quarter: 2006Q4

REPORT INFORMATION
  Report Type: 
  Country: None (occurrence: None)
  Receive Date: 20061016
  Receipt Date: 20061002
  Transmission Date: 20070319
  Serious: Yes (Other)
  Sender: FDA-Public Use
  Company Number: 2006120915

PATIENT
  Age: 40 Year
  Sex: Male

DRUGS (2)
  1. PREGABALIN             (PREGABALIN) [Suspect]
     Indication: NECK PAIN
     Dosage: 50 MG (25 MG, 2 IN 1 D); ORAL
     Route: 048
     Dates: start: 20060612, end: 20060804
  2. CO-CODAMOL                               (CODEINE PHOSPHATE, PARACETAM [Concomitant]

REACTIONS (3)
  - DIPLOPIA [None]
  - EYE PRURITUS [None]
  - VISION BLURRED [None]
